FAERS Safety Report 7429561-5 (Version None)
Quarter: 2011Q2

REPORT INFORMATION
  Report Type: 
  Country: None (occurrence: None)
  Receive Date: 20110421
  Receipt Date: 20110413
  Transmission Date: 20111010
  Serious: Yes (Other)
  Sender: FDA-Public Use
  Company Number: A0917592A

PATIENT
  Age: 68 Year
  Sex: Female
  Weight: 131 kg

DRUGS (3)
  1. XELODA [Concomitant]
     Indication: BREAST CANCER
  2. MS CONTIN [Concomitant]
  3. TYKERB [Suspect]
     Indication: BREAST CANCER
     Dosage: 1000MG PER DAY
     Route: 065
     Dates: start: 20110228

REACTIONS (9)
  - TRANSIENT ISCHAEMIC ATTACK [None]
  - NAUSEA [None]
  - MOUTH ULCERATION [None]
  - FATIGUE [None]
  - CONVULSION [None]
  - BRAIN NEOPLASM [None]
  - DIARRHOEA [None]
  - MALAISE [None]
  - CONSTIPATION [None]
